FAERS Safety Report 22324736 (Version 1)
Quarter: 2023Q2

REPORT INFORMATION
  Report Type: Spontaneous
  Country: FR (occurrence: FR)
  Receive Date: 20230516
  Receipt Date: 20230516
  Transmission Date: 20230721
  Serious: Yes (Life-Threatening)
  Sender: FDA-Public Use
  Company Number: None

PATIENT
  Age: 81 Year
  Sex: Female

DRUGS (1)
  1. FENTANYL [Suspect]
     Active Substance: FENTANYL
     Indication: Pain
     Route: 065
     Dates: start: 20230202, end: 20230202

REACTIONS (3)
  - Somnolence [Recovering/Resolving]
  - Respiratory distress [Recovering/Resolving]
  - Bradycardia [Recovering/Resolving]

NARRATIVE: CASE EVENT DATE: 20230202
